FAERS Safety Report 19910728 (Version 1)
Quarter: 2021Q4

REPORT INFORMATION
  Report Type: Spontaneous
  Country: CN (occurrence: CN)
  Receive Date: 20211004
  Receipt Date: 20211004
  Transmission Date: 20220303
  Serious: Yes (Disabling)
  Sender: FDA-Public Use
  Company Number: CN-BAXTER-2021BAX023644

PATIENT
  Age: 2 Year
  Sex: Male
  Weight: 13.6 kg

DRUGS (6)
  1. CYCLOPHOSPHAMIDE [Suspect]
     Active Substance: CYCLOPHOSPHAMIDE
     Indication: Acute lymphocytic leukaemia
     Dosage: DILUTED WITH 250ML OF (4:1) GLUCOSE AND SODIUM CHLORIDE INJECTION
     Route: 041
     Dates: start: 20190606, end: 20190606
  2. DEXTROSE\SODIUM CHLORIDE [Suspect]
     Active Substance: DEXTROSE\SODIUM CHLORIDE
     Indication: Acute lymphocytic leukaemia
     Dosage: USE AS DILUENT FOR ENDOXAN
     Route: 041
     Dates: start: 20190606, end: 20190606
  3. DEXTROSE\SODIUM CHLORIDE [Suspect]
     Active Substance: DEXTROSE\SODIUM CHLORIDE
     Dosage: USE AS DILUENT FOR CYTARABINE
     Route: 041
     Dates: start: 20190606, end: 20190609
  4. CYTARABINE [Suspect]
     Active Substance: CYTARABINE
     Indication: Acute lymphocytic leukaemia
     Dosage: DILUTED WITH 100 ML OF (4:1) GLUCOSE AND SODIUM CHLORIDE INJECTION
     Route: 041
     Dates: start: 20190606, end: 20190609
  5. MERCAPTOPURINE [Suspect]
     Active Substance: MERCAPTOPURINE
     Indication: Acute lymphocytic leukaemia
     Route: 048
     Dates: start: 20190606, end: 20190613
  6. ONDANSETRON HYDROCHLORIDE [Concomitant]
     Active Substance: ONDANSETRON HYDROCHLORIDE
     Indication: Prophylaxis of nausea and vomiting
     Route: 042
     Dates: start: 20190606, end: 20190609

REACTIONS (1)
  - Myelosuppression [Recovering/Resolving]

NARRATIVE: CASE EVENT DATE: 20190616
